FAERS Safety Report 8922184 (Version 1)
Quarter: 2012Q4

REPORT INFORMATION
  Report Type: Spontaneous
  Country: US (occurrence: None)
  Receive Date: 20121120
  Receipt Date: 20121120
  Transmission Date: 20130627
  Serious: Yes (Hospitalization, Disabling, Other)
  Sender: FDA-Public Use
  Company Number: None

PATIENT
  Age: 28 Year
  Sex: Female
  Weight: 82 kg

DRUGS (2)
  1. TOPAMAX [Suspect]
     Indication: TEMPORAL LOBE EPILEPSY
     Dates: start: 20080901, end: 20120914
  2. TOPAMAX [Suspect]
     Indication: MIGRAINE
     Dates: start: 20080901, end: 20120914

REACTIONS (11)
  - Pyrexia [None]
  - Vomiting [None]
  - Nephrolithiasis [None]
  - Urinary tract infection [None]
  - Pancreatitis acute [None]
  - Liver disorder [None]
  - Vaginal haemorrhage [None]
  - Abdominal pain upper [None]
  - Abdominal pain [None]
  - Constipation [None]
  - Faecaloma [None]
